FAERS Safety Report 25888309 (Version 5)
Quarter: 2025Q4

REPORT INFORMATION
  Report Type: Spontaneous
  Country: AU (occurrence: AU)
  Receive Date: 20251007
  Receipt Date: 20251219
  Transmission Date: 20260119
  Serious: Yes (Hospitalization)
  Sender: CSL BEHRING
  Company Number: AU-BEH-2025220166

PATIENT
  Age: 84 Year
  Sex: Female
  Weight: 71 kg

DRUGS (3)
  1. HUMAN IMMUNOGLOBULIN G [Suspect]
     Active Substance: HUMAN IMMUNOGLOBULIN G
     Indication: Hypogammaglobulinaemia
     Dosage: 20 MG, QMT
     Route: 042
     Dates: start: 20250917, end: 20250917
  2. HUMAN IMMUNOGLOBULIN G [Suspect]
     Active Substance: HUMAN IMMUNOGLOBULIN G
     Indication: Immunodeficiency common variable
     Dosage: 10 MG, QMT
     Route: 042
  3. HUMAN IMMUNOGLOBULIN G [Suspect]
     Active Substance: HUMAN IMMUNOGLOBULIN G
     Indication: Non-Hodgkin^s lymphoma
     Dosage: UNK
     Route: 065
     Dates: start: 20250917

REACTIONS (14)
  - Back pain [Recovering/Resolving]
  - Bone pain [Recovering/Resolving]
  - Hypertension [Recovering/Resolving]
  - Hypertension [Recovering/Resolving]
  - Abdominal pain [Unknown]
  - Headache [Unknown]
  - Lethargy [Unknown]
  - Malaise [Unknown]
  - Nausea [Unknown]
  - Asthenia [Unknown]
  - Pyrexia [Unknown]
  - Fatigue [Unknown]
  - Pain [Unknown]
  - Nausea [Unknown]

NARRATIVE: CASE EVENT DATE: 20250917
